FAERS Safety Report 4489073-8 (Version None)
Quarter: 2004Q4

REPORT INFORMATION
  Report Type: 
  Country: None (occurrence: None)
  Receive Date: 20041029
  Receipt Date: 20041018
  Transmission Date: 20050328
  Serious: Yes (Hospitalization)
  Sender: FDA-Public Use
  Company Number: GB-MERCK-0410GBR00187

PATIENT
  Sex: Female

DRUGS (1)
  1. VIOXX [Suspect]
     Route: 048
     Dates: start: 20031006

REACTIONS (7)
  - BALANCE DISORDER [None]
  - CARDIAC FAILURE [None]
  - FALL [None]
  - HEART RATE IRREGULAR [None]
  - HIP FRACTURE [None]
  - MYOCARDIAL INFARCTION [None]
  - SHOCK [None]
